FAERS Safety Report 25445614 (Version 1)
Quarter: 2025Q2

REPORT INFORMATION
  Report Type: Spontaneous
  Country: CN (occurrence: CN)
  Receive Date: 20250617
  Receipt Date: 20250617
  Transmission Date: 20250717
  Serious: Yes (Other)
  Sender: MYLAN
  Company Number: CN-MYLANLABS-2025M1049939

PATIENT
  Age: 71 Year
  Sex: Male

DRUGS (2)
  1. LYRICA [Suspect]
     Active Substance: PREGABALIN
     Indication: Herpes zoster infection neurological
     Dosage: 75 MILLIGRAM, BID
     Dates: start: 20250515, end: 20250519
  2. LYRICA [Suspect]
     Active Substance: PREGABALIN
     Indication: Chronic kidney disease

REACTIONS (2)
  - Delirium [Unknown]
  - Somnambulism [Unknown]

NARRATIVE: CASE EVENT DATE: 20250518
